FAERS Safety Report 18600372 (Version 1)
Quarter: 2020Q4

REPORT INFORMATION
  Report Type: Spontaneous
  Country: US (occurrence: US)
  Receive Date: 20201210
  Receipt Date: 20201210
  Transmission Date: 20210114
  Serious: Yes (Hospitalization, Other)
  Sender: FDA-Public Use
  Company Number: US-TEVA-2020-US-1856276

PATIENT
  Age: 66 Year
  Sex: Male

DRUGS (14)
  1. VALGANCICLOVIR. [Concomitant]
     Active Substance: VALGANCICLOVIR
     Indication: PROPHYLAXIS
     Route: 065
  2. DAPTOMYCIN. [Concomitant]
     Active Substance: DAPTOMYCIN
     Indication: PROPHYLAXIS
     Route: 042
  3. MYCOPHENOLATE MOFETIL. [Suspect]
     Active Substance: MYCOPHENOLATE MOFETIL
     Indication: IMMUNOSUPPRESSANT DRUG THERAPY
     Dosage: 4 DOSES
     Route: 065
     Dates: start: 2018
  4. METHYLPREDNISOLONE. [Suspect]
     Active Substance: METHYLPREDNISOLONE
     Indication: IMMUNOSUPPRESSANT DRUG THERAPY
     Dosage: 4 DOSES
     Route: 065
  5. VORICONAZOLE. [Suspect]
     Active Substance: VORICONAZOLE
     Indication: DERMATOPHYTOSIS
     Dosage: LOADING DOSE
     Route: 065
  6. ANTITHYMOCYTE GLOBULIN [Suspect]
     Active Substance: THYMOCYTE IMMUNE GLOBULIN NOS
     Indication: IMMUNOSUPPRESSANT DRUG THERAPY
     Dosage: 4 DOSES
     Route: 065
     Dates: start: 2018
  7. NYSTATIN. [Concomitant]
     Active Substance: NYSTATIN
     Indication: PROPHYLAXIS
     Route: 050
  8. PREDNISONE. [Suspect]
     Active Substance: PREDNISONE
     Indication: IMMUNOSUPPRESSANT DRUG THERAPY
     Route: 048
  9. IMMUNOGOBULIN [Concomitant]
     Indication: PROPHYLAXIS
     Route: 042
  10. VANCOMYCIN [Concomitant]
     Active Substance: VANCOMYCIN
     Indication: PROPHYLAXIS
     Route: 042
  11. TACROLIMUS. [Suspect]
     Active Substance: TACROLIMUS
     Indication: IMMUNOSUPPRESSANT DRUG THERAPY
     Dosage: 4 DOSES
     Route: 065
     Dates: start: 2018
  12. TRIMETHOPRIM-SULFAMETHOXAZOLE [Concomitant]
     Active Substance: SULFAMETHOXAZOLE\TRIMETHOPRIM
     Indication: ANTIBIOTIC PROPHYLAXIS
     Route: 065
  13. VORICONAZOLE. [Suspect]
     Active Substance: VORICONAZOLE
     Dosage: MAINTENANCE DOSE
     Route: 065
  14. TERBINAFINE. [Concomitant]
     Active Substance: TERBINAFINE
     Indication: DERMATOPHYTOSIS
     Dosage: 1000 MILLIGRAM DAILY;
     Route: 048

REACTIONS (3)
  - Trichophytosis [Recovered/Resolved]
  - Hallucination, visual [Unknown]
  - Dermatophytosis [Recovered/Resolved]
